FAERS Safety Report 8069440-6 (Version None)
Quarter: 2012Q1

REPORT INFORMATION
  Report Type: 
  Country: None (occurrence: None)
  Receive Date: 20120125
  Receipt Date: 20120117
  Transmission Date: 20120608
  Serious: Yes (Congenital Anomaly, Other)
  Sender: FDA-Public Use
  Company Number: US-PFIZER INC-2012003374

PATIENT
  Sex: Male
  Weight: 3.6 kg

DRUGS (2)
  1. ZOLOFT [Suspect]
     Dosage: 100 MG DAILY
     Route: 064
     Dates: start: 20020909
  2. PRENATAL [Concomitant]
     Dosage: ONE TABLET EVERY DAY
     Route: 064
     Dates: start: 20030418

REACTIONS (9)
  - MATERNAL EXPOSURE TIMING UNSPECIFIED [None]
  - HYPOTONIA NEONATAL [None]
  - SCAPHOCEPHALY [None]
  - CRANIOSYNOSTOSIS [None]
  - SLEEP APNOEA SYNDROME [None]
  - HYDROCEPHALUS [None]
  - MOTOR DYSFUNCTION [None]
  - CONVULSION [None]
  - PERIODIC LIMB MOVEMENT DISORDER [None]
